FAERS Safety Report 14373347 (Version 1)
Quarter: 2018Q1

REPORT INFORMATION
  Report Type: Spontaneous
  Country: US (occurrence: AS)
  Receive Date: 20180109
  Receipt Date: 20180109
  Transmission Date: 20180509
  Serious: Yes (Life-Threatening, Hospitalization)
  Sender: FDA-Public Use
  Company Number: None

PATIENT
  Age: 65 Year
  Sex: Male

DRUGS (1)
  1. ALTEPLASE. [Suspect]
     Active Substance: ALTEPLASE
     Indication: TRANSIENT ISCHAEMIC ATTACK
     Dates: start: 20170614, end: 20170614

REACTIONS (4)
  - Haemorrhage intracranial [None]
  - Transient ischaemic attack [None]
  - Cerebrovascular accident [None]
  - Muscle haemorrhage [None]

NARRATIVE: CASE EVENT DATE: 20170614
